FAERS Safety Report 18163566 (Version 3)
Quarter: 2020Q4

REPORT INFORMATION
  Report Type: Report from Study
  Country: GB (occurrence: GB)
  Receive Date: 20200818
  Receipt Date: 20201006
  Transmission Date: 20210113
  Serious: Yes (Hospitalization, Other)
  Sender: FDA-Public Use
  Company Number: NVSC2020GB224457

PATIENT
  Sex: Female

DRUGS (2)
  1. HYRIMOZ [Suspect]
     Active Substance: ADALIMUMAB-ADAZ
     Indication: CROHN^S DISEASE
     Dosage: 1 DF, Q2W (FORTNIGHTLY) (80MG -WEEK 2,40MG -WEEK 4;THEN 40MG EOW)
     Route: 058
     Dates: start: 20200616
  2. HYDROXOCOBALAMIN [Suspect]
     Active Substance: HYDROXOCOBALAMIN
     Indication: PRODUCT USED FOR UNKNOWN INDICATION
     Dosage: UNK
     Route: 065

REACTIONS (12)
  - Peripheral swelling [Unknown]
  - Skin discolouration [Unknown]
  - Burning sensation [Unknown]
  - Feeling abnormal [Unknown]
  - Nausea [Unknown]
  - Haemorrhage [Unknown]
  - Intestinal obstruction [Unknown]
  - Localised infection [Unknown]
  - Blister [Unknown]
  - Lacrimation increased [Unknown]
  - Limb injury [Unknown]
  - Hypoaesthesia [Unknown]
